FAERS Safety Report 6428655-0 (Version None)
Quarter: 2009Q4

REPORT INFORMATION
  Report Type: 
  Country: None (occurrence: None)
  Receive Date: 20091104
  Receipt Date: 20091104
  Transmission Date: 20100525
  Serious: Yes (Hospitalization)
  Sender: FDA-Public Use
  Company Number: None

PATIENT
  Age: 60 Year
  Sex: Male
  Weight: 77.2 kg

DRUGS (1)
  1. CLINDAMYCIN [Suspect]
     Indication: EAR INFECTION
     Dosage: 300 MG QID PO
     Route: 048
     Dates: start: 20090820, end: 20090824

REACTIONS (4)
  - DIPLOPIA [None]
  - EAR PAIN [None]
  - OTORRHOEA [None]
  - RASH PRURITIC [None]
